FAERS Safety Report 5478711-9 (Version None)
Quarter: 2007Q4

REPORT INFORMATION
  Report Type: 
  Country: None (occurrence: None)
  Receive Date: 20071005
  Receipt Date: 20070927
  Transmission Date: 20080405
  Serious: Yes (Hospitalization)
  Sender: FDA-Public Use
  Company Number: BR-ABBOTT-07P-020-0418886-00

PATIENT
  Sex: Female
  Weight: 56 kg

DRUGS (6)
  1. HUMIRA [Suspect]
     Indication: RHEUMATOID ARTHRITIS
     Dosage: APPLICATION
     Route: 058
     Dates: start: 20051201
  2. UNKNOWN [Concomitant]
     Indication: PAIN
     Route: 048
  3. UNKNOWN [Concomitant]
     Indication: HYPERTENSION
     Route: 048
  4. CHLORTHALIDONE [Concomitant]
     Indication: CARDIAC FAILURE
     Route: 048
  5. UNKNOWN CORTICOID [Concomitant]
     Indication: RHEUMATOID ARTHRITIS
     Route: 048
  6. UNKNOWN ANTIBIOTIC [Concomitant]
     Indication: DRUG USE FOR UNKNOWN INDICATION
     Route: 048
     Dates: start: 20070727

REACTIONS (3)
  - ANAEMIA [None]
  - FOOT DEFORMITY [None]
  - WEIGHT INCREASED [None]
